FAERS Safety Report 5266988-4 (Version None)
Quarter: 2007Q1

REPORT INFORMATION
  Report Type: 
  Country: None (occurrence: None)
  Receive Date: 20070312
  Receipt Date: 20070226
  Transmission Date: 20070707
  Serious: Yes (Other)
  Sender: FDA-Public Use
  Company Number: 34746

PATIENT
  Age: 36 Year
  Sex: Male
  Weight: 111 kg

DRUGS (1)
  1. VECURONIUM BROMIDE [Suspect]
     Dosage: 20MG IV X 1
     Dates: start: 20070117

REACTIONS (2)
  - MEDICATION ERROR [None]
  - WRONG DRUG ADMINISTERED [None]
